FAERS Safety Report 8319085-5 (Version None)
Quarter: 2012Q2

REPORT INFORMATION
  Report Type: 
  Country: None (occurrence: None)
  Receive Date: 20120427
  Receipt Date: 20120419
  Transmission Date: 20120825
  Serious: Yes (Other)
  Sender: FDA-Public Use
  Company Number: GB-JNJFOC-20120409174

PATIENT
  Sex: Male

DRUGS (1)
  1. RISPERDAL [Suspect]
     Indication: ANXIETY
     Route: 048
     Dates: end: 20081201

REACTIONS (11)
  - DRUG DEPENDENCE [None]
  - WEIGHT GAIN POOR [None]
  - FATIGUE [None]
  - LEARNING DISORDER [None]
  - DEPRESSION [None]
  - MEMORY IMPAIRMENT [None]
  - CONVULSION [None]
  - FEELING ABNORMAL [None]
  - ANXIETY [None]
  - SOMNAMBULISM [None]
  - WEIGHT INCREASED [None]
